FAERS Safety Report 9516342 (Version 1)
Quarter: 2013Q1

REPORT INFORMATION
  Report Type: Spontaneous
  Country: US (occurrence: None)
  Receive Date: 20130305
  Receipt Date: 20130305
  Transmission Date: 20140127
  Serious: Yes (Other)
  Sender: FDA-Public Use
  Company Number: 163-21880-12012060

PATIENT
  Age: 63 Year
  Sex: Male

DRUGS (9)
  1. REVLIMID [Suspect]
     Indication: PLASMA CELL MYELOMA
     Dosage: 1 IN 1 D
     Route: 048
     Dates: start: 20111110
  2. BLOOD PRESSURE MEDICATION [Concomitant]
  3. PAIN MEDICATION [Concomitant]
  4. NORCO [Concomitant]
  5. CRESTOR [Concomitant]
  6. COREG [Concomitant]
  7. ZETIA [Concomitant]
  8. FISH OIL [Concomitant]
  9. LASIX [Concomitant]

REACTIONS (1)
  - Renal impairment [None]
